FAERS Safety Report 9893418 (Version 2)
Quarter: 2014Q1

REPORT INFORMATION
  Report Type: Spontaneous
  Country: US (occurrence: US)
  Receive Date: 20140213
  Receipt Date: 20140319
  Transmission Date: 20141002
  Serious: Yes (Other)
  Sender: FDA-Public Use
  Company Number: US-TEVA-462178USA

PATIENT
  Sex: Female

DRUGS (2)
  1. NUVIGIL [Suspect]
  2. XYREM [Suspect]

REACTIONS (6)
  - Cataract [Unknown]
  - Blood pressure increased [Unknown]
  - Lethargy [Unknown]
  - Alopecia [Unknown]
  - Dizziness [Unknown]
  - Mental disorder [Unknown]
